FAERS Safety Report 20983407 (Version 1)
Quarter: 2022Q2

REPORT INFORMATION
  Report Type: Spontaneous
  Country: JP (occurrence: JP)
  Receive Date: 20220620
  Receipt Date: 20220620
  Transmission Date: 20220721
  Serious: Yes (Hospitalization)
  Sender: FDA-Public Use
  Company Number: JP-SA-2020SA372650

PATIENT
  Age: 40 Year
  Sex: Female

DRUGS (2)
  1. HERBESSER [Suspect]
     Active Substance: DILTIAZEM HYDROCHLORIDE
     Indication: Product used for unknown indication
     Route: 048
     Dates: start: 20201218
  2. HERBESSER [Suspect]
     Active Substance: DILTIAZEM HYDROCHLORIDE
     Route: 048
     Dates: start: 20201223

REACTIONS (7)
  - Cardiogenic shock [Unknown]
  - Shock [Unknown]
  - Renal disorder [Unknown]
  - Liver disorder [Unknown]
  - Toxicity to various agents [Unknown]
  - Overdose [Unknown]
  - Overdose [Unknown]

NARRATIVE: CASE EVENT DATE: 20201218
